FAERS Safety Report 9764307 (Version 2)
Quarter: 2013Q4

REPORT INFORMATION
  Report Type: Report from Study
  Country: CA (occurrence: CA)
  Receive Date: 20131217
  Receipt Date: 20131217
  Transmission Date: 20140711
  Serious: Yes (Death, Other)
  Sender: FDA-Public Use
  Company Number: CA-ROCHE-1271052

PATIENT
  Age: 89 Year
  Sex: Female
  Weight: 50 kg

DRUGS (13)
  1. RITUXAN [Suspect]
     Indication: RHEUMATOID ARTHRITIS
     Dosage: DAY 1 + 15
     Route: 042
     Dates: start: 20090828, end: 20131204
  2. ACTEMRA [Suspect]
     Indication: RHEUMATOID ARTHRITIS
     Route: 065
  3. METHOTREXATE [Concomitant]
  4. FOLIC ACID [Concomitant]
  5. TYLENOL [Concomitant]
  6. PULMICORT [Concomitant]
  7. VENTOLIN [Concomitant]
  8. RAMIPRIL [Concomitant]
  9. CRESTOR [Concomitant]
  10. NORVASC [Concomitant]
  11. DIPHENHYDRAMINE HCL [Concomitant]
     Route: 048
     Dates: start: 20090827
  12. ACETAMINOPHEN [Concomitant]
     Route: 048
     Dates: start: 20090827
  13. METHYLPREDNISOLON [Concomitant]
     Route: 042
     Dates: start: 20090827

REACTIONS (5)
  - Death [Fatal]
  - Weight increased [Unknown]
  - Pneumonia [Not Recovered/Not Resolved]
  - Urinary tract infection [Unknown]
  - Arthralgia [Not Recovered/Not Resolved]
